FAERS Safety Report 20075209 (Version 2)
Quarter: 2021Q4

REPORT INFORMATION
  Report Type: Spontaneous
  Country: US (occurrence: US)
  Receive Date: 20211116
  Receipt Date: 20211201
  Transmission Date: 20220303
  Serious: No
  Sender: FDA-Public Use
  Company Number: US-LUPIN PHARMACEUTICALS INC.-2021-22088

PATIENT
  Sex: Female

DRUGS (2)
  1. FLUOCINONIDE [Suspect]
     Active Substance: FLUOCINONIDE
     Indication: Nasal congestion
     Dosage: UNK
     Route: 065
  2. FLUOCINONIDE [Suspect]
     Active Substance: FLUOCINONIDE
     Dosage: UNK

REACTIONS (4)
  - Throat irritation [Unknown]
  - Nasal discomfort [Unknown]
  - Accidental exposure to product [Unknown]
  - Product use in unapproved indication [Unknown]
